FAERS Safety Report 7826869-6 (Version None)
Quarter: 2011Q4

REPORT INFORMATION
  Report Type: 
  Country: None (occurrence: None)
  Receive Date: 20111020
  Receipt Date: 20111017
  Transmission Date: 20120403
  Serious: No
  Sender: FDA-Public Use
  Company Number: US-B.I. PHARMACEUTICALS,INC./RIDGEFIELD-2011-BP-22248BP

PATIENT
  Age: 28 Year
  Sex: Female
  Weight: 72.2 kg

DRUGS (3)
  1. BIRTH CONTROL PILL [Concomitant]
     Indication: ORAL CONTRACEPTION
  2. DRONEDARONE HCL [Concomitant]
     Dosage: 800 MG
  3. PRADAXA [Suspect]
     Indication: ATRIAL FIBRILLATION
     Dosage: 300 MG
     Route: 048
     Dates: start: 20110501, end: 20110917

REACTIONS (3)
  - FATIGUE [None]
  - VAGINAL HAEMORRHAGE [None]
  - MENORRHAGIA [None]
